FAERS Safety Report 16879094 (Version 1)
Quarter: 2019Q4

REPORT INFORMATION
  Report Type: Report from Study
  Country: CH (occurrence: CH)
  Receive Date: 20191002
  Receipt Date: 20191002
  Transmission Date: 20200122
  Serious: Yes (Life-Threatening, Hospitalization)
  Sender: FDA-Public Use
  Company Number: CH-BAXTER-2019BAX018990

PATIENT
  Age: 66 Year
  Sex: Male

DRUGS (16)
  1. ENDOXAN 1 G. TROCKENSUBSTANZ ZUR INTRAVEN?SEN INFUSION [Suspect]
     Active Substance: CYCLOPHOSPHAMIDE
     Route: 042
     Dates: start: 20190723, end: 20190723
  2. ENALAPRIL [Concomitant]
     Active Substance: ENALAPRIL
     Route: 048
     Dates: start: 20190702, end: 20190706
  3. AMLODIPINE [Concomitant]
     Active Substance: AMLODIPINE BESYLATE
     Indication: HYPERTENSION
     Route: 048
     Dates: start: 20190626
  4. ASPIRIN. [Suspect]
     Active Substance: ASPIRIN
     Indication: PROSTATE CANCER
     Route: 048
  5. ENDOXAN 1 G. TROCKENSUBSTANZ ZUR INTRAVEN?SEN INFUSION [Suspect]
     Active Substance: CYCLOPHOSPHAMIDE
     Dosage: LAST DOSE ADMINISTERED PRIOR TO SAE
     Route: 042
     Dates: start: 20190820, end: 20190820
  6. NIVOLUMAB [Suspect]
     Active Substance: NIVOLUMAB
     Indication: PROSTATE CANCER
     Dosage: FIRST DOSE
     Route: 042
     Dates: start: 20190724, end: 20190724
  7. NIVOLUMAB [Suspect]
     Active Substance: NIVOLUMAB
     Dosage: LAST DOSE ADMINISTERED PRIOR TO SAE
     Route: 042
     Dates: start: 20190821, end: 20190821
  8. ENALAPRIL [Concomitant]
     Active Substance: ENALAPRIL
     Route: 048
     Dates: start: 20190707
  9. ACETAMINOPHEN. [Concomitant]
     Active Substance: ACETAMINOPHEN
     Indication: HYPERTENSION
     Route: 048
     Dates: start: 20190820, end: 20190820
  10. CETRIZINE [Concomitant]
     Active Substance: CETIRIZINE HYDROCHLORIDE
     Indication: PRODUCT USED FOR UNKNOWN INDICATION
     Dosage: 1 UNIT, AS NEEDED
     Route: 061
     Dates: start: 20190806
  11. ENOXAPARIN SODIUM. [Concomitant]
     Active Substance: ENOXAPARIN SODIUM
     Indication: PRODUCT USED FOR UNKNOWN INDICATION
     Route: 058
     Dates: start: 201908
  12. ENDOXAN 1 G. TROCKENSUBSTANZ ZUR INTRAVEN?SEN INFUSION [Suspect]
     Active Substance: CYCLOPHOSPHAMIDE
     Indication: PROSTATE CANCER
     Dosage: FIRST DOSE
     Route: 042
     Dates: start: 20190709, end: 20190709
  13. NIVOLUMAB [Suspect]
     Active Substance: NIVOLUMAB
     Route: 042
     Dates: start: 20190807, end: 20190807
  14. IPILIMUMAB [Suspect]
     Active Substance: IPILIMUMAB
     Indication: PROSTATE CANCER
     Route: 042
     Dates: start: 20190724, end: 20190724
  15. ENDOXAN 1 G. TROCKENSUBSTANZ ZUR INTRAVEN?SEN INFUSION [Suspect]
     Active Substance: CYCLOPHOSPHAMIDE
     Route: 042
     Dates: start: 20190806, end: 20190806
  16. ENALAPRIL [Concomitant]
     Active Substance: ENALAPRIL
     Indication: HYPERTENSION
     Route: 048
     Dates: start: 20190625, end: 20190702

REACTIONS (1)
  - Autoimmune myocarditis [Not Recovered/Not Resolved]

NARRATIVE: CASE EVENT DATE: 20190826
